FAERS Safety Report 10900564 (Version 1)
Quarter: 2015Q1

REPORT INFORMATION
  Report Type: Spontaneous
  Country: US (occurrence: None)
  Receive Date: 20150303
  Receipt Date: 20150303
  Transmission Date: 20150721
  Serious: Yes (Other)
  Sender: FDA-Public Use
  Company Number: None

PATIENT
  Age: 49 Year
  Sex: Female

DRUGS (1)
  1. REBIF [Suspect]
     Active Substance: INTERFERON BETA-1A
     Indication: MULTIPLE SCLEROSIS
     Route: 058
     Dates: start: 20140916, end: 20150228

REACTIONS (7)
  - Vomiting [None]
  - Chromaturia [None]
  - Diarrhoea [None]
  - Decreased appetite [None]
  - Nausea [None]
  - Liver disorder [None]
  - Faeces discoloured [None]

NARRATIVE: CASE EVENT DATE: 20150225
